FAERS Safety Report 25147641 (Version 2)
Quarter: 2025Q2

REPORT INFORMATION
  Report Type: Spontaneous
  Country: US (occurrence: US)
  Receive Date: 20250402
  Receipt Date: 20250610
  Transmission Date: 20250716
  Serious: Yes (Hospitalization, Other)
  Sender: MILLICENT HOLDINGS
  Company Number: US-Millicent Holdings Ltd.-MILL20250122

PATIENT
  Age: 60 Year
  Sex: Female
  Weight: 58.97 kg

DRUGS (2)
  1. INTRAROSA [Suspect]
     Active Substance: PRASTERONE
     Indication: Dyspareunia
     Route: 067
  2. INTRAROSA [Suspect]
     Active Substance: PRASTERONE
     Indication: Atrophic vulvovaginitis

REACTIONS (6)
  - Syncope [Recovered/Resolved]
  - Fall [Recovered/Resolved]
  - Multiple fractures [Recovering/Resolving]
  - Drug interaction [Unknown]
  - Uterine haemorrhage [Unknown]
  - Endometrial thickening [Unknown]

NARRATIVE: CASE EVENT DATE: 20250301
